FAERS Safety Report 5411790-3 (Version None)
Quarter: 2007Q3

REPORT INFORMATION
  Report Type: 
  Country: None (occurrence: None)
  Receive Date: 20070713
  Receipt Date: 20070319
  Transmission Date: 20080115
  Serious: No
  Sender: FDA-Public Use
  Company Number: 2007SP000969

PATIENT
  Age: 73 Year
  Sex: Female
  Weight: 68.4932 kg

DRUGS (2)
  1. LUNESTA [Suspect]
     Indication: INSOMNIA
     Dosage: 2 MG;ORAL
     Route: 048
     Dates: start: 20070311, end: 20070314
  2. ATENOLOL [Concomitant]

REACTIONS (7)
  - ANOREXIA [None]
  - ERUCTATION [None]
  - FLATULENCE [None]
  - HALLUCINATION [None]
  - NAUSEA [None]
  - VOMITING [None]
  - WEIGHT DECREASED [None]
